FAERS Safety Report 12714947 (Version 2)
Quarter: 2016Q4

REPORT INFORMATION
  Report Type: Report from Study
  Country: JP (occurrence: JP)
  Receive Date: 20160905
  Receipt Date: 20161104
  Transmission Date: 20170207
  Serious: Yes (Other)
  Sender: FDA-Public Use
  Company Number: JP-009507513-1608JPN015146

PATIENT
  Age: 58 Year
  Sex: Male

DRUGS (11)
  1. ISENTRESS [Suspect]
     Active Substance: RALTEGRAVIR POTASSIUM
     Indication: HIV INFECTION
     Dosage: 800 MG, QD (DIVIDED DOSE FREQUENCY: UNKNOWN)
     Route: 048
     Dates: start: 20100728
  2. CRAVIT [Concomitant]
     Active Substance: LEVOFLOXACIN
     Indication: DRY EYE
     Dosage: DAILY DOSE UNKNOWN, QID
     Route: 047
  3. FERROMIA [Concomitant]
     Active Substance: FERROUS CITRATE
     Indication: HAEMOGLOBIN DECREASED
     Dosage: 50 MG, QD
     Route: 048
  4. ALDACTONE A [Concomitant]
     Active Substance: SPIRONOLACTONE
     Indication: CARDIAC FAILURE
     Dosage: 25 MG, QD
     Route: 048
  5. ARTIST [Concomitant]
     Active Substance: CARVEDILOL
     Indication: CARDIAC FAILURE
     Dosage: 10 MG, BID
     Route: 048
  6. RENIVACE TABLETS 2.5 [Concomitant]
     Active Substance: ENALAPRIL MALEATE
     Indication: CARDIAC FAILURE
     Dosage: 1.25 MG, BID
     Route: 048
  7. SANCOBA [Concomitant]
     Active Substance: CYANOCOBALAMIN
     Indication: DRY EYE
     Dosage: DAILY DOSE UNKNOWN, TID
     Route: 047
  8. HYALEIN [Concomitant]
     Active Substance: HYALURONATE SODIUM
     Indication: DRY EYE
     Dosage: UNKNOWN DOSE, TID
     Route: 047
  9. ZYLORIC [Concomitant]
     Active Substance: ALLOPURINOL
     Indication: HYPERURICAEMIA
     Dosage: 100 MG, BID
     Route: 048
  10. LASIX [Concomitant]
     Active Substance: FUROSEMIDE
     Indication: CARDIAC FAILURE
     Dosage: 20 MG, QD
     Route: 065
  11. TRUVADA [Suspect]
     Active Substance: EMTRICITABINE\TENOFOVIR DISOPROXIL FUMARATE
     Indication: HIV INFECTION
     Dosage: 1 DOSAGE FORM, QD (DIVIDED DOSE FREQUENCY UNKNOWN)
     Route: 048
     Dates: start: 20100728

REACTIONS (2)
  - White blood cell count increased [Recovered/Resolved]
  - Type 2 diabetes mellitus [Not Recovered/Not Resolved]

NARRATIVE: CASE EVENT DATE: 20150428
